FAERS Safety Report 16652753 (Version 1)
Quarter: 2019Q3

REPORT INFORMATION
  Report Type: Spontaneous
  Country: FR (occurrence: FR)
  Receive Date: 20190731
  Receipt Date: 20190731
  Transmission Date: 20191004
  Serious: Yes (Hospitalization)
  Sender: FDA-Public Use
  Company Number: FR-GUERBET-FR-20190448

PATIENT
  Age: 71 Year
  Sex: Female

DRUGS (5)
  1. VOLTARENE (DICLOFENAC SODIUM) [Suspect]
     Active Substance: DICLOFENAC SODIUM
     Indication: TENDON DISORDER
     Route: 003
     Dates: end: 20190612
  2. DAFALGAN [Suspect]
     Active Substance: ACETAMINOPHEN
     Indication: TENDON DISORDER
     Route: 048
     Dates: start: 20190606, end: 20190617
  3. OPTIRAY 350 [Suspect]
     Active Substance: IOVERSOL
     Indication: COMPUTERISED TOMOGRAM
     Route: 042
     Dates: start: 20190606, end: 20190606
  4. BROMAZEPAM [Suspect]
     Active Substance: BROMAZEPAM
     Indication: TENDON DISORDER
     Route: 048
     Dates: start: 20190606, end: 20190617
  5. VOLTARENE (DICLOFENAC SODIUM) [Suspect]
     Active Substance: DICLOFENAC SODIUM
     Indication: TENDON DISORDER
     Route: 048
     Dates: start: 20190606, end: 20190612

REACTIONS (3)
  - Eosinophilia [Not Recovered/Not Resolved]
  - Purpura [Not Recovered/Not Resolved]
  - Rash maculo-papular [Not Recovered/Not Resolved]

NARRATIVE: CASE EVENT DATE: 20190612
